FAERS Safety Report 24770830 (Version 1)
Quarter: 2024Q4

REPORT INFORMATION
  Report Type: Spontaneous
  Country: CN (occurrence: CN)
  Receive Date: 20241224
  Receipt Date: 20241224
  Transmission Date: 20250115
  Serious: Yes (Life-Threatening, Hospitalization, Other)
  Sender: MERCK
  Company Number: CN-009507513-2412CHN008376

PATIENT
  Age: 60 Year
  Sex: Male

DRUGS (2)
  1. PEMBROLIZUMAB [Suspect]
     Active Substance: PEMBROLIZUMAB
     Indication: Lung adenocarcinoma stage IV
     Dosage: 200 MILLIGRAM, 22 CYCLES
  2. BEVACIZUMAB [Suspect]
     Active Substance: BEVACIZUMAB
     Indication: Lung adenocarcinoma stage IV
     Dosage: UNK, 22 CYCLES

REACTIONS (4)
  - Immune-mediated adrenal insufficiency [Recovering/Resolving]
  - Addison^s disease [Recovering/Resolving]
  - Thyroid gland injury [Recovering/Resolving]
  - Product use issue [Unknown]
